FAERS Safety Report 6171302-6 (Version None)
Quarter: 2009Q2

REPORT INFORMATION
  Report Type: 
  Country: None (occurrence: None)
  Receive Date: 20090428
  Receipt Date: 20090428
  Transmission Date: 20091009
  Serious: Yes (Disabling)
  Sender: FDA-Public Use
  Company Number: None

PATIENT
  Sex: Female
  Weight: 68.0396 kg

DRUGS (1)
  1. PARAGARD T 380A [Suspect]
     Indication: CONTRACEPTION
     Dosage: 1 ENDOCERVICAL
     Route: 005
     Dates: start: 20010101, end: 20090423

REACTIONS (3)
  - ABDOMINAL PAIN [None]
  - DEVICE BREAKAGE [None]
  - IUCD COMPLICATION [None]
